FAERS Safety Report 6869770-7 (Version None)
Quarter: 2010Q3

REPORT INFORMATION
  Report Type: 
  Country: None (occurrence: None)
  Receive Date: 20100722
  Receipt Date: 20081021
  Transmission Date: 20110219
  Serious: No
  Sender: FDA-Public Use
  Company Number: US-PFIZER INC-2008063328

PATIENT
  Sex: Female
  Weight: 65.77 kg

DRUGS (2)
  1. CHANTIX [Suspect]
     Indication: SMOKING CESSATION THERAPY
     Dates: start: 20080619
  2. NIFEDIPINE [Concomitant]
     Indication: OESOPHAGEAL SPASM

REACTIONS (7)
  - ABDOMINAL PAIN UPPER [None]
  - ABNORMAL DREAMS [None]
  - CONSTIPATION [None]
  - GASTRITIS [None]
  - MICTURITION DISORDER [None]
  - NAUSEA [None]
  - SLEEP DISORDER [None]
